FAERS Safety Report 17329291 (Version 3)
Quarter: 2020Q1

REPORT INFORMATION
  Report Type: Report from Study
  Country: US (occurrence: US)
  Receive Date: 20200127
  Receipt Date: 20200226
  Transmission Date: 20200409
  Serious: No
  Sender: FDA-Public Use
  Company Number: US-SA-2020SA019178

PATIENT
  Age: 30 Year
  Sex: Female

DRUGS (2)
  1. DUPILUMAB [Suspect]
     Active Substance: DUPILUMAB
     Dosage: 600 MG, MAINTENANCE DOSE
     Route: 058
     Dates: start: 20200120, end: 20200120
  2. DUPILUMAB [Suspect]
     Active Substance: DUPILUMAB
     Indication: DERMATITIS ATOPIC
     Dosage: 600 MG, 1X, LOADING DOSE
     Route: 058
     Dates: start: 20200106, end: 20200106

REACTIONS (3)
  - Cough [Unknown]
  - Extra dose administered [Unknown]
  - Throat clearing [Unknown]

NARRATIVE: CASE EVENT DATE: 20200120
